FAERS Safety Report 7892322-7 (Version None)
Quarter: 2011Q4

REPORT INFORMATION
  Report Type: 
  Country: None (occurrence: None)
  Receive Date: 20111104
  Receipt Date: 20111031
  Transmission Date: 20120403
  Serious: Yes (Other)
  Sender: FDA-Public Use
  Company Number: US-AMGEN-USASP2011056386

PATIENT
  Sex: Female

DRUGS (14)
  1. PROLIA [Suspect]
     Indication: OSTEOPOROSIS POSTMENOPAUSAL
     Dosage: 660 MG, Q6MO
     Dates: start: 20110113
  2. VIVELLE-DOT [Concomitant]
     Dosage: 1 MG, QD
     Route: 062
  3. AMITRIPTYLINE HCL [Concomitant]
     Indication: PAIN
     Dosage: UNK UNK, QD
  4. DICLOFENAC [Concomitant]
     Dosage: UNK UNK, QD
  5. SAVELLA [Concomitant]
     Indication: FIBROMYALGIA
     Dosage: UNK
  6. ZOLOFT [Concomitant]
     Dosage: UNK UNK, QD
  7. BUTRANS [Concomitant]
     Indication: PAIN
     Dosage: 10 MUG, UNK
     Route: 062
     Dates: end: 20110101
  8. ZETIA [Concomitant]
     Dosage: 1 UNK, UNK
  9. LOVAZA [Concomitant]
     Dosage: UNK UNK, QD
  10. ZENPEP [Concomitant]
     Indication: DYSPEPSIA
  11. VERAPAMIL [Concomitant]
     Dosage: UNK UNK, QD
  12. XANAX [Concomitant]
     Dosage: UNK UNK, QD
  13. AMITIZA [Concomitant]
     Dosage: 2 UNK, UNK
  14. HYDROCHLOROTHIAZIDE [Concomitant]
     Indication: NEPHROLITHIASIS
     Dosage: UNK UNK, QD

REACTIONS (7)
  - INCORRECT DOSE ADMINISTERED [None]
  - INTESTINAL PROLAPSE [None]
  - ANXIETY [None]
  - JAW DISORDER [None]
  - PAIN [None]
  - DEPRESSED MOOD [None]
  - CONSTIPATION [None]
